FAERS Safety Report 22219615 (Version 1)
Quarter: 2023Q2

REPORT INFORMATION
  Report Type: Report from Study
  Country: AT (occurrence: AT)
  Receive Date: 20230417
  Receipt Date: 20230417
  Transmission Date: 20230722
  Serious: No
  Sender: FDA-Public Use
  Company Number: AT-KARYOPHARM-2023KPT001053

PATIENT
  Age: 51 Year
  Sex: Female

DRUGS (4)
  1. SELINEXOR [Suspect]
     Active Substance: SELINEXOR
     Indication: Ovarian cancer metastatic
     Dosage: 50 MG/M2, 2X/WEEK
     Route: 048
     Dates: start: 20230309, end: 20230331
  2. EUTHYROX [Concomitant]
     Active Substance: LEVOTHYROXINE SODIUM
  3. URSODIOL [Concomitant]
     Active Substance: URSODIOL
  4. ACETAMINOPHEN [Concomitant]
     Active Substance: ACETAMINOPHEN

REACTIONS (1)
  - Ovarian cancer metastatic [Unknown]

NARRATIVE: CASE EVENT DATE: 20230301
